FAERS Safety Report 6652549-9 (Version None)
Quarter: 2010Q1

REPORT INFORMATION
  Report Type: 
  Country: None (occurrence: None)
  Receive Date: 20100325
  Receipt Date: 20100325
  Transmission Date: 20100710
  Serious: Yes (Other)
  Sender: FDA-Public Use
  Company Number: None

PATIENT
  Sex: Male
  Weight: 78.2 kg

DRUGS (1)
  1. TYLENOL MULTI-SYMPTOM COLD DAY AND NIGHT MCNEAL CONSUMER HEALTH CARE, [Suspect]
     Indication: NASOPHARYNGITIS
     Dosage: 2 PILLS FIRST EVENING ONE TIME 2 PILLS FOLLOWING MORNING ONE TIME

REACTIONS (8)
  - ASTHENIA [None]
  - CHEST PAIN [None]
  - DRUG INEFFECTIVE [None]
  - FATIGUE [None]
  - IMPAIRED WORK ABILITY [None]
  - RASH GENERALISED [None]
  - URTICARIA [None]
  - VISUAL IMPAIRMENT [None]
